FAERS Safety Report 13016905 (Version 1)
Quarter: 2016Q4

REPORT INFORMATION
  Report Type: Spontaneous
  Country: US (occurrence: US)
  Receive Date: 20161209
  Receipt Date: 20161209
  Transmission Date: 20170207
  Serious: Yes (Disabling)
  Sender: FDA-Public Use
  Company Number: None

PATIENT
  Age: 37 Year
  Sex: Female
  Weight: 51.75 kg

DRUGS (17)
  1. OXYCODONE 10MG [Suspect]
     Active Substance: OXYCODONE
     Indication: BURSITIS
     Dosage: ?          QUANTITY:90 TABLET(S);?
     Route: 048
     Dates: start: 20061017, end: 20161209
  2. K2 [Concomitant]
     Active Substance: JWH-018
  3. MS CONTIN [Concomitant]
     Active Substance: MORPHINE SULFATE
  4. OXYCODONE 10MG [Suspect]
     Active Substance: OXYCODONE
     Indication: BASEDOW^S DISEASE
     Dosage: ?          QUANTITY:90 TABLET(S);?
     Route: 048
     Dates: start: 20061017, end: 20161209
  5. OXYCODONE 10MG [Suspect]
     Active Substance: OXYCODONE
     Indication: SCOLIOSIS
     Dosage: ?          QUANTITY:90 TABLET(S);?
     Route: 048
     Dates: start: 20061017, end: 20161209
  6. OXYCODONE 10MG [Suspect]
     Active Substance: OXYCODONE
     Indication: OSTEOPOROSIS
     Dosage: ?          QUANTITY:90 TABLET(S);?
     Route: 048
     Dates: start: 20061017, end: 20161209
  7. ZANAFLEX [Concomitant]
     Active Substance: TIZANIDINE HYDROCHLORIDE
  8. YAZ [Concomitant]
     Active Substance: DROSPIRENONE\ETHINYL ESTRADIOL
  9. OXYCODONE [Concomitant]
     Active Substance: OXYCODONE
  10. MAGNESIUM [Suspect]
     Active Substance: MAGNESIUM
  11. ZINC [Concomitant]
     Active Substance: ZINC\ZINC CHLORIDE
  12. D [Concomitant]
  13. CALCIUM [Concomitant]
     Active Substance: CALCIUM
  14. OXYCODONE 10MG [Suspect]
     Active Substance: OXYCODONE
     Indication: FIBROSIS
     Dosage: ?          QUANTITY:90 TABLET(S);?
     Route: 048
     Dates: start: 20061017, end: 20161209
  15. PROPRANOLOL [Concomitant]
     Active Substance: PROPRANOLOL\PROPRANOLOL HYDROCHLORIDE
  16. VITAMIN B COMPLEX [Concomitant]
     Active Substance: CYANOCOBALAMIN\DEXPANTHENOL\NIACINAMIDE\PYRIDOXINE HYDROCHLORIDE\RIBOFLAVIN 5^-PHOSPHATE SODIUM\THIAMINE HYDROCHLORIDE\VITAMIN B COMPLEX
  17. SELENIUM [Concomitant]
     Active Substance: SELENIUM

REACTIONS (2)
  - Drug ineffective [None]
  - Product substitution issue [None]

NARRATIVE: CASE EVENT DATE: 20161208
